FAERS Safety Report 14034137 (Version 2)
Quarter: 2017Q4

REPORT INFORMATION
  Report Type: Spontaneous
  Country: US (occurrence: US)
  Receive Date: 20171003
  Receipt Date: 20171016
  Transmission Date: 20180321
  Serious: No
  Sender: FDA-Public Use
  Company Number: US-PFIZER INC-2017423961

PATIENT
  Age: 37 Year
  Sex: Male
  Weight: 99.79 kg

DRUGS (1)
  1. VIAGRA [Suspect]
     Active Substance: SILDENAFIL CITRATE
     Dosage: 25 MG PILL

REACTIONS (2)
  - Erection increased [Not Recovered/Not Resolved]
  - Ejaculation disorder [Not Recovered/Not Resolved]

NARRATIVE: CASE EVENT DATE: 20170928
